FAERS Safety Report 9861706 (Version 1)
Quarter: 2014Q1

REPORT INFORMATION
  Report Type: Spontaneous
  Country: US (occurrence: None)
  Receive Date: 20140131
  Receipt Date: 20140131
  Transmission Date: 20141002
  Serious: No
  Sender: FDA-Public Use
  Company Number: None

PATIENT
  Age: 55 Year
  Sex: Female
  Weight: 54.43 kg

DRUGS (11)
  1. XELJANZ [Suspect]
     Dosage: 2 TABS QD ORAL
     Dates: start: 20140107, end: 20140130
  2. LASIX [Concomitant]
  3. PREDNISONE [Concomitant]
  4. KLOR-CON [Concomitant]
  5. PRAVASTATIN [Concomitant]
  6. DICLOFENAC [Concomitant]
  7. TRAZODONE [Concomitant]
  8. VICODIN [Concomitant]
  9. LOTREL [Concomitant]
  10. ZIAC [Concomitant]
  11. TRAMADOL [Concomitant]

REACTIONS (1)
  - Headache [None]
